FAERS Safety Report 19820483 (Version 1)
Quarter: 2021Q3

REPORT INFORMATION
  Report Type: Report from Study
  Country: CO (occurrence: CO)
  Receive Date: 20210913
  Receipt Date: 20210913
  Transmission Date: 20211014
  Serious: Yes (Death, Hospitalization)
  Sender: FDA-Public Use
  Company Number: CO-ASTRAZENECA-2021A720931

PATIENT
  Age: 20483 Day
  Sex: Male
  Weight: 75 kg

DRUGS (1)
  1. TAGRISSO [Suspect]
     Active Substance: OSIMERTINIB
     Indication: LUNG NEOPLASM MALIGNANT
     Route: 048
     Dates: start: 20190606, end: 20210904

REACTIONS (2)
  - Dyspnoea [Fatal]
  - Pain [Fatal]

NARRATIVE: CASE EVENT DATE: 20210831
